FAERS Safety Report 22384449 (Version 1)
Quarter: 2023Q2

REPORT INFORMATION
  Report Type: Report from Study
  Country: DE (occurrence: DE)
  Receive Date: 20230530
  Receipt Date: 20230530
  Transmission Date: 20230721
  Serious: Yes (Hospitalization, Other)
  Sender: FDA-Public Use
  Company Number: DE-002147023-NVSC2023DE121276

PATIENT
  Sex: Female
  Weight: 100 kg

DRUGS (7)
  1. COSENTYX [Suspect]
     Active Substance: SECUKINUMAB
     Indication: Psoriasis
     Dosage: 300 MG
     Route: 065
     Dates: start: 20200508, end: 20220520
  2. COSENTYX [Suspect]
     Active Substance: SECUKINUMAB
     Dosage: 300 MG
     Route: 065
     Dates: start: 20221224
  3. RAMIPRIL [Concomitant]
     Active Substance: RAMIPRIL
     Indication: Product used for unknown indication
     Dosage: 2.5 MG, BID (MORNING AND AFTERNOON)
     Route: 065
  4. THIAMINE [Concomitant]
     Active Substance: THIAMINE
     Indication: Product used for unknown indication
     Dosage: 100 MG, QD (MORNING)
     Route: 065
  5. CITALOPRAM [Concomitant]
     Active Substance: CITALOPRAM HYDROBROMIDE
     Indication: Product used for unknown indication
     Dosage: 10 MG, QD
     Route: 065
  6. LACTULOSE [Concomitant]
     Active Substance: LACTULOSE
     Indication: Product used for unknown indication
     Dosage: 1 DOSAGE FORM, QD
     Route: 065
  7. HEPA MERZ [Concomitant]
     Indication: Product used for unknown indication
     Dosage: 3000 IU, TID (MORNING, AFTERNOON AND  EVENING)
     Route: 065

REACTIONS (10)
  - Cirrhosis alcoholic [Not Recovered/Not Resolved]
  - Varices oesophageal [Not Recovered/Not Resolved]
  - Portal hypertensive gastropathy [Unknown]
  - Jaundice [Unknown]
  - Abdominal distension [Unknown]
  - Ascites [Unknown]
  - Fatigue [Unknown]
  - Coronavirus infection [Recovered/Resolved]
  - Cholestasis [Unknown]
  - Cholelithiasis [Unknown]

NARRATIVE: CASE EVENT DATE: 20220520
